FAERS Safety Report 5236861-6 (Version None)
Quarter: 2007Q1

REPORT INFORMATION
  Report Type: 
  Country: None (occurrence: None)
  Receive Date: 20070213
  Receipt Date: 20070207
  Transmission Date: 20070707
  Serious: Yes (Other)
  Sender: FDA-Public Use
  Company Number: US-JNJFOC-20070202248

PATIENT
  Sex: Female
  Weight: 77.11 kg

DRUGS (4)
  1. DURAGESIC-100 [Suspect]
     Indication: PAIN
     Route: 062
  2. OXYCODONE [Concomitant]
     Indication: PAIN
     Route: 048
  3. NEXIUM [Concomitant]
     Route: 048
  4. PREMARIN [Concomitant]
     Route: 048

REACTIONS (2)
  - JOINT INJURY [None]
  - OSTEOARTHRITIS [None]
